FAERS Safety Report 24528056 (Version 1)
Quarter: 2024Q4

REPORT INFORMATION
  Report Type: Spontaneous
  Country: US (occurrence: None)
  Receive Date: 20241018
  Receipt Date: 20241018
  Transmission Date: 20250114
  Serious: Yes (Hospitalization)
  Sender: Public
  Company Number: None

PATIENT
  Age: 83 Year
  Sex: Male

DRUGS (2)
  1. APIXABAN [Suspect]
     Active Substance: APIXABAN
     Indication: Atrial fibrillation
     Dosage: FREQUENCY : TWICE A DAY;?
     Route: 048
     Dates: start: 20200501, end: 20240401
  2. ASPIRIN [Suspect]
     Active Substance: ASPIRIN
     Indication: Transient ischaemic attack
     Dosage: FREQUENCY : DAILY;?
     Route: 048
     Dates: start: 20130430

REACTIONS (2)
  - Gastrointestinal haemorrhage [None]
  - Red blood cell transfusion [None]

NARRATIVE: CASE EVENT DATE: 20240401
